FAERS Safety Report 4546164-0 (Version None)
Quarter: 2005Q1

REPORT INFORMATION
  Report Type: 
  Country: None (occurrence: None)
  Receive Date: 20050106
  Receipt Date: 20040923
  Transmission Date: 20050727
  Serious: Yes (Death, Other)
  Sender: FDA-Public Use
  Company Number: FR-NOVOPROD-239516

PATIENT
  Age: 42 Year
  Sex: Female
  Weight: 74 kg

DRUGS (7)
  1. NOVOSEVEN [Suspect]
     Indication: POSTPARTUM HAEMORRHAGE
     Dosage: 4.8 MG IN TOTAL
     Route: 042
     Dates: start: 20040922, end: 20040922
  2. ADRENALINE [Concomitant]
     Dosage: 0.5 MG/H
     Route: 042
     Dates: start: 20040922, end: 20040922
  3. LEVOPHED [Concomitant]
     Dosage: 4.3 MG/H
     Route: 042
     Dates: start: 20040922, end: 20040928
  4. DEBUTREX [Concomitant]
     Dosage: 2 MG/H
     Route: 042
     Dates: start: 20040922, end: 20040928
  5. HYDROCORTISON [Concomitant]
     Dosage: 400 MG, QD
     Route: 042
     Dates: start: 20040922, end: 20040925
  6. TRASYLOL [Concomitant]
     Dates: start: 20040922, end: 20040922
  7. ANTITHROMBIN III [Concomitant]
     Dates: start: 20040922, end: 20040922

REACTIONS (5)
  - BRAIN DEATH [None]
  - HAEMODIALYSIS [None]
  - MEDICAL DEVICE COMPLICATION [None]
  - MULTI-ORGAN FAILURE [None]
  - THROMBOSIS [None]
